FAERS Safety Report 17791113 (Version 3)
Quarter: 2020Q2

REPORT INFORMATION
  Report Type: Spontaneous
  Country: JP (occurrence: JP)
  Receive Date: 20200514
  Receipt Date: 20200604
  Transmission Date: 20200714
  Serious: Yes (Other)
  Sender: FDA-Public Use
  Company Number: JP-AMGEN-JPNSP2020075925

PATIENT
  Age: 73 Year

DRUGS (1)
  1. EVENITY [Suspect]
     Active Substance: ROMOSOZUMAB-AQQG
     Indication: PRODUCT USED FOR UNKNOWN INDICATION
     Dosage: 210 MILLIGRAM
     Route: 058
     Dates: end: 20200330

REACTIONS (5)
  - Supraventricular tachycardia [Unknown]
  - Back pain [Unknown]
  - Anuria [Unknown]
  - Dysuria [Unknown]
  - Groin pain [Unknown]

NARRATIVE: CASE EVENT DATE: 2020
